FAERS Safety Report 9260989 (Version 1)
Quarter: 2013Q2

REPORT INFORMATION
  Report Type: Spontaneous
  Country: US (occurrence: US)
  Receive Date: 20130429
  Receipt Date: 20130429
  Transmission Date: 20140414
  Serious: No
  Sender: FDA-Public Use
  Company Number: US-AMGEN-USASP2012056695

PATIENT
  Age: 44 Year
  Sex: Male

DRUGS (1)
  1. SENSIPAR [Suspect]
     Indication: HYPERPARATHYROIDISM SECONDARY
     Dosage: UNK UNK, QWK
     Route: 048

REACTIONS (3)
  - Cough [Recovered/Resolved]
  - Blood calcium increased [Unknown]
  - Blood phosphorus increased [Unknown]
